FAERS Safety Report 18670694 (Version 3)
Quarter: 2021Q1

REPORT INFORMATION
  Report Type: Report from Study
  Country: JP (occurrence: JP)
  Receive Date: 20201228
  Receipt Date: 20210204
  Transmission Date: 20210419
  Serious: Yes (Death)
  Sender: FDA-Public Use
  Company Number: JP-EMD SERONO-9209227

PATIENT
  Age: 69 Year
  Sex: Male
  Weight: 58 kg

DRUGS (8)
  1. INLYTA [Suspect]
     Active Substance: AXITINIB
     Dates: start: 20200922, end: 20200923
  2. INLYTA [Suspect]
     Active Substance: AXITINIB
     Dates: start: 20200924, end: 20201012
  3. ACETAMINOPHEN. [Concomitant]
     Active Substance: ACETAMINOPHEN
     Indication: PREMEDICATION
     Route: 048
     Dates: start: 20200817, end: 20201102
  4. BAVENCIO [Suspect]
     Active Substance: AVELUMAB
     Indication: METASTATIC RENAL CELL CARCINOMA
     Dates: start: 20200817, end: 20201102
  5. INLYTA [Suspect]
     Active Substance: AXITINIB
     Dosage: DOSE REDUCED
     Dates: start: 20200902, end: 20200917
  6. INLYTA [Suspect]
     Active Substance: AXITINIB
     Indication: METASTATIC RENAL CELL CARCINOMA
     Dates: start: 20200817, end: 20200831
  7. INLYTA [Suspect]
     Active Substance: AXITINIB
     Dates: start: 20201102, end: 20201109
  8. DIPHENHYDRAMINE. [Concomitant]
     Active Substance: DIPHENHYDRAMINE
     Indication: PREMEDICATION
     Route: 048
     Dates: start: 20200817, end: 20201102

REACTIONS (2)
  - Death [Fatal]
  - Disease progression [Unknown]

NARRATIVE: CASE EVENT DATE: 202012
